FAERS Safety Report 16703948 (Version 1)
Quarter: 2019Q3

REPORT INFORMATION
  Report Type: Spontaneous
  Country: US (occurrence: US)
  Receive Date: 20190814
  Receipt Date: 20190814
  Transmission Date: 20191004
  Serious: Yes (Other)
  Sender: FDA-Public Use
  Company Number: US-BRISTOL-MYERS SQUIBB COMPANY-BMS-2019-079037

PATIENT
  Sex: Female

DRUGS (1)
  1. ELIQUIS [Suspect]
     Active Substance: APIXABAN
     Indication: PULMONARY EMBOLISM
     Dosage: 5 MILLIGRAM, BID
     Route: 048
     Dates: start: 2019

REACTIONS (7)
  - Menorrhagia [Unknown]
  - Self-injurious ideation [Unknown]
  - Blood electrolytes decreased [Unknown]
  - Palpitations [Unknown]
  - Dyspnoea [Unknown]
  - Prescribed underdose [Unknown]
  - Depression [Unknown]
